FAERS Safety Report 25413581 (Version 2)
Quarter: 2025Q2

REPORT INFORMATION
  Report Type: Spontaneous
  Country: US (occurrence: US)
  Receive Date: 20250609
  Receipt Date: 20250616
  Transmission Date: 20250717
  Serious: No
  Sender: AMGEN
  Company Number: US-AMGEN-USASP2025110544

PATIENT
  Age: 15 Year
  Sex: Female

DRUGS (1)
  1. AMJEVITA [Suspect]
     Active Substance: ADALIMUMAB-ATTO
     Indication: Osteomyelitis
     Dosage: 40 MILLIGRAM, Q2WK (40MG/0.4)
     Route: 058
     Dates: start: 20250331

REACTIONS (11)
  - Illness [Unknown]
  - Food intolerance [Unknown]
  - Abdominal discomfort [Unknown]
  - Fear of injection [Unknown]
  - Device difficult to use [Unknown]
  - Drug dose omission by device [Unknown]
  - Off label use [Unknown]
  - Weight decreased [Unknown]
  - Injection site bruising [Unknown]
  - Anxiety [Unknown]
  - Nausea [Unknown]

NARRATIVE: CASE EVENT DATE: 20250331
